FAERS Safety Report 9215532 (Version 2)
Quarter: 2013Q2

REPORT INFORMATION
  Report Type: Spontaneous
  Country: US (occurrence: US)
  Receive Date: 20130406
  Receipt Date: 20130604
  Transmission Date: 20140414
  Serious: No
  Sender: FDA-Public Use
  Company Number: US-009507513-1304USA001506

PATIENT
  Sex: Female
  Weight: 70.98 kg

DRUGS (1)
  1. IMPLANON [Suspect]
     Dosage: UNK
     Route: 065
     Dates: start: 20121119, end: 20130325

REACTIONS (3)
  - Menstruation irregular [Unknown]
  - Acne [Unknown]
  - Headache [Unknown]
